FAERS Safety Report 22613884 (Version 4)
Quarter: 2024Q1

REPORT INFORMATION
  Report Type: Report from Study
  Country: US (occurrence: US)
  Receive Date: 20230619
  Receipt Date: 20240217
  Transmission Date: 20240410
  Serious: Yes (Hospitalization, Other)
  Sender: FDA-Public Use
  Company Number: US-ABBVIE-5294035

PATIENT
  Sex: Female

DRUGS (5)
  1. SKYRIZI [Suspect]
     Active Substance: RISANKIZUMAB-RZAA
     Indication: Crohn^s disease
     Route: 042
     Dates: start: 2023
  2. SKYRIZI [Suspect]
     Active Substance: RISANKIZUMAB-RZAA
     Dosage: TIME INTERVAL: TOTAL: STRENGTH:360MG/2.4M?AT WEEK 12
     Route: 058
     Dates: start: 2023, end: 2023
  3. SKYRIZI [Suspect]
     Active Substance: RISANKIZUMAB-RZAA
     Indication: Crohn^s disease
     Dosage: TIME INTERVAL: TOTAL: WEEK 0
     Route: 042
     Dates: start: 202301, end: 202301
  4. SKYRIZI [Suspect]
     Active Substance: RISANKIZUMAB-RZAA
     Indication: Crohn^s disease
     Dosage: TIME INTERVAL: TOTAL: WEEK 4
     Route: 042
     Dates: start: 2023, end: 2023
  5. SKYRIZI [Suspect]
     Active Substance: RISANKIZUMAB-RZAA
     Indication: Crohn^s disease
     Dosage: TIME INTERVAL: TOTAL: WEEK 8
     Route: 042
     Dates: start: 2023, end: 2023

REACTIONS (9)
  - Large intestinal stenosis [Recovering/Resolving]
  - General physical health deterioration [Unknown]
  - Gastrointestinal sounds abnormal [Unknown]
  - Flatulence [Not Recovered/Not Resolved]
  - Arthralgia [Not Recovered/Not Resolved]
  - Frequent bowel movements [Not Recovered/Not Resolved]
  - Insomnia [Unknown]
  - Fatigue [Unknown]
  - Crohn^s disease [Unknown]

NARRATIVE: CASE EVENT DATE: 20230101
